FAERS Safety Report 20629545 (Version 1)
Quarter: 2022Q1

REPORT INFORMATION
  Report Type: Spontaneous
  Country: US (occurrence: US)
  Receive Date: 20220323
  Receipt Date: 20220323
  Transmission Date: 20220424
  Serious: Yes (Hospitalization)
  Sender: FDA-Public Use
  Company Number: US-PFM-2022-02381

PATIENT
  Age: 1 Month
  Sex: Female

DRUGS (2)
  1. PROPRANOLOL [Suspect]
     Active Substance: PROPRANOLOL HYDROCHLORIDE
     Indication: Infantile haemangioma
     Dosage: TWICE DAILY
     Route: 048
  2. PROPRANOLOL [Suspect]
     Active Substance: PROPRANOLOL HYDROCHLORIDE
     Dosage: DOSE WAS TITRATED UPWARDS FROM 1 TO 2.3 MG/KG/DAY OVER 4 WEEKS
     Route: 048

REACTIONS (3)
  - Feeding intolerance [Unknown]
  - Vomiting [Unknown]
  - Hypertriglyceridaemia [Unknown]
